FAERS Safety Report 10659436 (Version 1)
Quarter: 2014Q4

REPORT INFORMATION
  Report Type: Spontaneous
  Country: US (occurrence: None)
  Receive Date: 20141205
  Receipt Date: 20141205
  Transmission Date: 20150529
  Serious: Yes (Other)
  Sender: FDA-Public Use
  Company Number: USA-2014102914

PATIENT
  Age: 67 Year
  Sex: Male
  Weight: 98.9 kg

DRUGS (18)
  1. ALPRAZOLAM (ALPRAZOLAM) [Concomitant]
     Active Substance: ALPRAZOLAM
  2. BYSTOLIC [Concomitant]
     Active Substance: NEBIVOLOL HYDROCHLORIDE
  3. ECOTRIN [Concomitant]
     Active Substance: ASPIRIN
  4. VELCADE [Concomitant]
     Active Substance: BORTEZOMIB
  5. PRAVASTATIN [Concomitant]
     Active Substance: PRAVASTATIN\PRAVASTATIN SODIUM
  6. POMALYST [Suspect]
     Active Substance: POMALIDOMIDE
     Indication: PLASMA CELL MYELOMA
     Dosage: 21 IN 28D
     Route: 048
     Dates: start: 20140819
  7. TAMSULOSIN (TAMSULOSIN) [Concomitant]
     Active Substance: TAMSULOSIN
  8. SERTRALINE [Concomitant]
     Active Substance: SERTRALINE HYDROCHLORIDE
  9. B -COMPLEX  (VITAMIN B COMPLEX) [Concomitant]
  10. LANSOPRAZOLE (LANSOPRAZOLE) [Concomitant]
     Active Substance: LANSOPRAZOLE
  11. FLUDROCORITOSNE (FLUDROCORTISONE) [Concomitant]
  12. ALEVE (NAPROXEN SODIUM) [Concomitant]
  13. PHENAZOPYRIDINE (PHENAZOPYRIDINE) [Concomitant]
     Active Substance: PHENAZOPYRIDINE
  14. AMLODIPINE [Concomitant]
     Active Substance: AMLODIPINE BESYLATE
  15. MIDODRINE (MIDODRINE) [Concomitant]
  16. OXYBUTYNIN (OXYBUTYNIN) [Concomitant]
     Active Substance: OXYBUTYNIN
  17. CIPROFLOXACIN (CIPROFLOXACIN) [Concomitant]
     Active Substance: CIPROFLOXACIN
  18. METFORMIN [Concomitant]
     Active Substance: METFORMIN HYDROCHLORIDE

REACTIONS (2)
  - White blood cell count decreased [None]
  - Full blood count decreased [None]

NARRATIVE: CASE EVENT DATE: 2014
